FAERS Safety Report 15791257 (Version 2)
Quarter: 2019Q1

REPORT INFORMATION
  Report Type: Report from Study
  Country: US (occurrence: US)
  Receive Date: 20190104
  Receipt Date: 20190108
  Transmission Date: 20190417
  Serious: Yes (Hospitalization)
  Sender: FDA-Public Use
  Company Number: US-GILEAD-2018-0382770

PATIENT
  Age: 13 Year
  Sex: Male

DRUGS (28)
  1. MOXIFLOXACIN. [Concomitant]
     Active Substance: MOXIFLOXACIN
  2. CETIRIZINE [Concomitant]
     Active Substance: CETIRIZINE HYDROCHLORIDE
  3. AQUADEKS [Concomitant]
     Active Substance: MINERALS\VITAMINS
  4. CIPROFLOXACIN. [Concomitant]
     Active Substance: CIPROFLOXACIN
  5. CREON [Concomitant]
     Active Substance: PANCRELIPASE AMYLASE\PANCRELIPASE LIPASE\PANCRELIPASE PROTEASE
  6. DEXAMETHASONE. [Concomitant]
     Active Substance: DEXAMETHASONE
  7. ALBUTEROL [SALBUTAMOL] [Concomitant]
     Active Substance: ALBUTEROL
  8. SMZ-TMP [Concomitant]
     Active Substance: SULFAMETHOXAZOLE\TRIMETHOPRIM
  9. CLINDAMYCIN. [Concomitant]
     Active Substance: CLINDAMYCIN
  10. CIPRODEX [CIPROFLOXACIN HYDROCHLORIDE] [Concomitant]
  11. PROVENTIL [Concomitant]
     Active Substance: ALBUTEROL
  12. DEXMETHYLPHENIDATE [Concomitant]
     Active Substance: DEXMETHYLPHENIDATE HYDROCHLORIDE
  13. PULMOZYME [Concomitant]
     Active Substance: DORNASE ALFA
  14. FLOVENT [Concomitant]
     Active Substance: FLUTICASONE PROPIONATE
  15. MONTELUKAST [Concomitant]
     Active Substance: MONTELUKAST SODIUM
  16. OMNITROPE [Concomitant]
     Active Substance: SOMATROPIN
  17. PREDNISONE. [Concomitant]
     Active Substance: PREDNISONE
  18. IPRATROPIUM [Concomitant]
     Active Substance: IPRATROPIUM
  19. FLUTICASONE. [Concomitant]
     Active Substance: FLUTICASONE
  20. SYMBICORT [Concomitant]
     Active Substance: BUDESONIDE\FORMOTEROL FUMARATE DIHYDRATE
  21. QVAR [Concomitant]
     Active Substance: BECLOMETHASONE DIPROPIONATE
  22. MINOCYCLINE [Concomitant]
     Active Substance: MINOCYCLINE\MINOCYCLINE HYDROCHLORIDE
  23. RANITIDINE. [Concomitant]
     Active Substance: RANITIDINE
  24. URSODIOL. [Concomitant]
     Active Substance: URSODIOL
  25. LANSOPRAZOLE. [Concomitant]
     Active Substance: LANSOPRAZOLE
  26. AZTREONAM LYSINE [Suspect]
     Active Substance: AZTREONAM LYSINE
     Indication: CYSTIC FIBROSIS
     Dosage: 75 MG, TID X28, OFF 28
     Route: 055
     Dates: start: 20130710
  27. HYDROCORT [HYDROCORTISONE ACETATE] [Concomitant]
  28. NYSTATIN. [Concomitant]
     Active Substance: NYSTATIN

REACTIONS (1)
  - Lung disorder [Unknown]

NARRATIVE: CASE EVENT DATE: 20181127
